FAERS Safety Report 24363250 (Version 1)
Quarter: 2024Q3

REPORT INFORMATION
  Report Type: Spontaneous
  Country: US (occurrence: US)
  Receive Date: 20240925
  Receipt Date: 20240925
  Transmission Date: 20241017
  Serious: Yes (Hospitalization)
  Sender: BIOGEN
  Company Number: US-BIOGENIDEC-2014BI087852

PATIENT
  Age: 41 Year
  Sex: Female

DRUGS (27)
  1. AVONEX [Suspect]
     Active Substance: INTERFERON BETA-1A
     Indication: Multiple sclerosis
     Route: 050
     Dates: start: 20111108
  2. AVONEX [Suspect]
     Active Substance: INTERFERON BETA-1A
     Dosage: EARLY FALL 2010
     Route: 050
     Dates: start: 2010
  3. AVONEX [Suspect]
     Active Substance: INTERFERON BETA-1A
  4. AVONEX [Suspect]
     Active Substance: INTERFERON BETA-1A
  5. AVONEX [Suspect]
     Active Substance: INTERFERON BETA-1A
  6. AVONEX [Suspect]
     Active Substance: INTERFERON BETA-1A
  7. AVONEX [Suspect]
     Active Substance: INTERFERON BETA-1A
  8. AVONEX [Suspect]
     Active Substance: INTERFERON BETA-1A
  9. AVONEX [Suspect]
     Active Substance: INTERFERON BETA-1A
  10. AVONEX [Suspect]
     Active Substance: INTERFERON BETA-1A
  11. AVONEX [Suspect]
     Active Substance: INTERFERON BETA-1A
  12. AVONEX [Suspect]
     Active Substance: INTERFERON BETA-1A
  13. AVONEX [Suspect]
     Active Substance: INTERFERON BETA-1A
  14. TYLENOL [Concomitant]
     Active Substance: ACETAMINOPHEN
     Indication: Product used for unknown indication
     Route: 050
  15. ABILIFY [Concomitant]
     Active Substance: ARIPIPRAZOLE
     Indication: Product used for unknown indication
     Route: 050
  16. LIORESAL [Concomitant]
     Active Substance: BACLOFEN
     Indication: Product used for unknown indication
     Route: 050
  17. NEURONTIN [Concomitant]
     Active Substance: GABAPENTIN
     Indication: Product used for unknown indication
     Route: 050
  18. NEURONTIN [Concomitant]
     Active Substance: GABAPENTIN
     Route: 050
  19. NORCO [Concomitant]
     Active Substance: ACETAMINOPHEN\HYDROCODONE BITARTRATE
     Indication: Pain
     Dosage: 5/325 MG
     Route: 050
  20. ATIVAN [Concomitant]
     Active Substance: LORAZEPAM
     Indication: Product used for unknown indication
     Route: 050
  21. ATIVAN [Concomitant]
     Active Substance: LORAZEPAM
     Route: 050
  22. PROVIGIL [Concomitant]
     Active Substance: MODAFINIL
     Indication: Product used for unknown indication
     Route: 050
  23. PROVIGIL [Concomitant]
     Active Substance: MODAFINIL
     Route: 050
  24. DOCONEXENT\ICOSAPENT [Concomitant]
     Active Substance: DOCONEXENT\ICOSAPENT
     Indication: Product used for unknown indication
     Route: 050
  25. DOCONEXENT\ICOSAPENT [Concomitant]
     Active Substance: DOCONEXENT\ICOSAPENT
     Route: 050
  26. PROTONIX [Concomitant]
     Active Substance: PANTOPRAZOLE SODIUM
     Indication: Product used for unknown indication
     Route: 050
  27. PROTONIX [Concomitant]
     Active Substance: PANTOPRAZOLE SODIUM
     Route: 050

REACTIONS (2)
  - Multiple sclerosis relapse [Recovered/Resolved]
  - Gastrointestinal procedural complication [Unknown]

NARRATIVE: CASE EVENT DATE: 20140201
